FAERS Safety Report 9131983 (Version 4)
Quarter: 2014Q2

REPORT INFORMATION
  Report Type: Report from Study
  Country: DE (occurrence: DE)
  Receive Date: 20130301
  Receipt Date: 20140401
  Transmission Date: 20141212
  Serious: Yes (Hospitalization)
  Sender: FDA-Public Use
  Company Number: DE-BAXTER-2013BAX006635

PATIENT
  Age: 51 Year
  Sex: Male
  Weight: 74 kg

DRUGS (23)
  1. ADVATE 2000 I.E. [Suspect]
     Route: 042
     Dates: start: 20121022
  2. ADVATE 2000 I.E. [Suspect]
     Route: 042
     Dates: start: 20121101
  3. ADVATE 2000 I.E. [Suspect]
     Route: 042
     Dates: start: 20121109
  4. LAMIVUDIN [Concomitant]
     Indication: HIV INFECTION
     Route: 048
     Dates: start: 20001001
  5. TENOFOVIR [Concomitant]
     Indication: HIV INFECTION
     Route: 048
     Dates: start: 20040401
  6. ATAZANAVIR [Concomitant]
     Indication: HIV INFECTION
     Route: 048
     Dates: start: 20050301
  7. RITONAVIR [Concomitant]
     Indication: HIV INFECTION
     Route: 048
     Dates: start: 20050701
  8. OXYCODONE [Concomitant]
     Indication: PAIN
     Route: 048
     Dates: start: 20110101
  9. OXYCODONE [Concomitant]
     Indication: ARTHROPATHY
  10. LISINOPRIL [Concomitant]
     Indication: HYPERTENSION
     Route: 048
     Dates: start: 20110720, end: 20120104
  11. ETORICOXIB [Concomitant]
     Indication: PAIN
     Route: 048
     Dates: start: 20060501
  12. ETORICOXIB [Concomitant]
     Indication: ARTHROPATHY
  13. INTERFERON [Concomitant]
     Indication: HEPATITIS C
     Route: 065
     Dates: start: 200107, end: 200206
  14. RIBAVIRIN [Concomitant]
     Indication: HEPATITIS C
     Route: 065
     Dates: start: 200107, end: 200206
  15. ADVATE 2000 I.E. [Suspect]
     Indication: FACTOR VIII DEFICIENCY
     Route: 042
     Dates: start: 20120930
  16. ADVATE 2000 I.E. [Suspect]
     Indication: PROPHYLAXIS
     Route: 042
     Dates: start: 20121203
  17. ADVATE 2000 I.E. [Suspect]
     Route: 042
     Dates: start: 20121203
  18. ADVATE 2000 I.E. [Suspect]
     Route: 042
     Dates: start: 20120727, end: 20121109
  19. ADVATE 2000 I.E. [Suspect]
     Route: 042
     Dates: start: 20121201, end: 20121201
  20. ADVATE 2000 I.E. [Suspect]
     Route: 042
  21. ADVATE 2000 I.E. [Suspect]
     Route: 042
     Dates: start: 20121014
  22. ADVATE 2000 I.E. [Suspect]
     Route: 042
     Dates: start: 20121017
  23. ADVATE 2000 I.E. [Suspect]
     Route: 042
     Dates: start: 20121021

REACTIONS (1)
  - Haemarthrosis [Recovering/Resolving]
